FAERS Safety Report 4740926-2 (Version None)
Quarter: 2005Q3

REPORT INFORMATION
  Report Type: 
  Country: None (occurrence: None)
  Receive Date: 20050729
  Receipt Date: 20050203
  Transmission Date: 20060218
  Serious: Yes (Hospitalization)
  Sender: FDA-Public Use
  Company Number: US-2005-000621

PATIENT
  Age: 56 Year
  Sex: Male

DRUGS (1)
  1. MAGNEVIST [Suspect]
     Indication: ANGIOGRAM PERIPHERAL
     Dosage: 20 ML, 1 DOSE
     Dates: start: 20041124, end: 20041124

REACTIONS (2)
  - COMPARTMENT SYNDROME [None]
  - EXTRAVASATION [None]
